FAERS Safety Report 12234434 (Version 2)
Quarter: 2016Q2

REPORT INFORMATION
  Report Type: Spontaneous
  Country: DE (occurrence: DE)
  Receive Date: 20160404
  Receipt Date: 20160414
  Transmission Date: 20160815
  Serious: Yes (Other)
  Sender: FDA-Public Use
  Company Number: DE-BAYER-2016-060744

PATIENT
  Age: 77 Year
  Sex: Male
  Weight: 83 kg

DRUGS (1)
  1. XOFIGO [Suspect]
     Active Substance: RADIUM RA-223 DICHLORIDE
     Indication: PROSTATE CANCER
     Dosage: UNK
     Route: 042
     Dates: start: 201511, end: 201604

REACTIONS (1)
  - Prostatic specific antigen increased [Unknown]
